FAERS Safety Report 17238068 (Version 1)
Quarter: 2020Q1

REPORT INFORMATION
  Report Type: Spontaneous
  Country: US (occurrence: US)
  Receive Date: 20200106
  Receipt Date: 20200106
  Transmission Date: 20200409
  Serious: Yes (Other)
  Sender: FDA-Public Use
  Company Number: US-PACIRA-201900217

PATIENT
  Sex: Male

DRUGS (2)
  1. BUPIVACAINE. [Suspect]
     Active Substance: BUPIVACAINE
     Indication: POSTOPERATIVE ANALGESIA
     Dosage: 30ML ADMIXED WITH 20 ML OF LIPOSOMAL BUPIVACAINE TO A TOTAL VOLUME OF 50ML
     Dates: start: 20190531
  2. EXPAREL [Suspect]
     Active Substance: BUPIVACAINE
     Indication: POSTOPERATIVE ANALGESIA
     Dosage: 20 ML ADMIXED WITH 30 ML OF 0.5% BUPIVACAINE TO A TOTAL VOLUME OF 50ML
     Dates: start: 20190531

REACTIONS (1)
  - Paralysis [Recovered/Resolved]

NARRATIVE: CASE EVENT DATE: 20190531
